FAERS Safety Report 23641684 (Version 1)
Quarter: 2024Q1

REPORT INFORMATION
  Report Type: Spontaneous
  Country: US (occurrence: US)
  Receive Date: 20240318
  Receipt Date: 20240318
  Transmission Date: 20240410
  Serious: No
  Sender: FDA-Public Use
  Company Number: US-PADAGIS-2022PAD00628

PATIENT

DRUGS (3)
  1. CLINDAMYCIN PHOSPHATE [Suspect]
     Active Substance: CLINDAMYCIN PHOSPHATE
     Indication: Hidradenitis
     Dosage: UNK
     Route: 061
  2. BENZOYL PEROXIDE [Suspect]
     Active Substance: BENZOYL PEROXIDE
     Indication: Hidradenitis
     Dosage: UNK, 10%
     Route: 065
  3. DOXYCYCLINE [Suspect]
     Active Substance: DOXYCYCLINE
     Indication: Hidradenitis
     Dosage: UNK
     Route: 048

REACTIONS (1)
  - Drug ineffective for unapproved indication [Unknown]
